FAERS Safety Report 17184519 (Version 1)
Quarter: 2019Q4

REPORT INFORMATION
  Report Type: Spontaneous
  Country: US (occurrence: US)
  Receive Date: 20191220
  Receipt Date: 20191220
  Transmission Date: 20200122
  Serious: No
  Sender: FDA-Public Use
  Company Number: US-PFIZER INC-2019546679

PATIENT
  Age: 66 Year
  Sex: Female

DRUGS (4)
  1. CEFUROXIME. [Suspect]
     Active Substance: CEFUROXIME
     Indication: COUGH
     Dosage: UNK
  2. CODEINE [Suspect]
     Active Substance: CODEINE
     Indication: COUGH
     Dosage: UNK
  3. CODEINE [Suspect]
     Active Substance: CODEINE
     Indication: NASAL CONGESTION
  4. CEFUROXIME. [Suspect]
     Active Substance: CEFUROXIME
     Indication: NASAL CONGESTION

REACTIONS (2)
  - Drug ineffective for unapproved indication [Unknown]
  - Off label use [Unknown]
